FAERS Safety Report 13272608 (Version 2)
Quarter: 2017Q4

REPORT INFORMATION
  Report Type: Spontaneous
  Country: US (occurrence: US)
  Receive Date: 20170227
  Receipt Date: 20171123
  Transmission Date: 20180320
  Serious: No
  Sender: FDA-Public Use
  Company Number: US-PFIZER INC-2017075301

PATIENT
  Age: 53 Year
  Sex: Female
  Weight: 67.59 kg

DRUGS (1)
  1. IBRANCE [Suspect]
     Active Substance: PALBOCICLIB
     Indication: HEPATIC CANCER
     Dosage: 75 MG, 1X/DAY (DAILY AT NIGHT EVERY MONTH)
     Route: 048
     Dates: start: 2017

REACTIONS (2)
  - Product use in unapproved indication [Unknown]
  - White blood cell count decreased [Unknown]

NARRATIVE: CASE EVENT DATE: 2017
